FAERS Safety Report 4539287-3 (Version None)
Quarter: 2004Q4

REPORT INFORMATION
  Report Type: 
  Country: None (occurrence: None)
  Receive Date: 20041222
  Receipt Date: 20041207
  Transmission Date: 20050328
  Serious: Yes (Other)
  Sender: FDA-Public Use
  Company Number: 2004-0007824

PATIENT
  Sex: Female

DRUGS (4)
  1. EMTRIVA [Suspect]
     Dates: start: 20041021
  2. VIREAD [Suspect]
     Dates: start: 20041021
  3. EFV (EFAVIRENZ) [Concomitant]
  4. COMBIVIR [Concomitant]

REACTIONS (4)
  - BLOOD CHOLESTEROL INCREASED [None]
  - BLOOD CREATINE PHOSPHOKINASE INCREASED [None]
  - CD4 LYMPHOCYTES DECREASED [None]
  - MYALGIA [None]
